FAERS Safety Report 4437046-3 (Version None)
Quarter: 2004Q3

REPORT INFORMATION
  Report Type: 
  Country: None (occurrence: None)
  Receive Date: 20040830
  Receipt Date: 20040811
  Transmission Date: 20050211
  Serious: Yes (Disabling)
  Sender: FDA-Public Use
  Company Number: CA-GLAXOSMITHKLINE-A0521956A

PATIENT
  Age: 61 Year
  Sex: Male
  Weight: 97.7 kg

DRUGS (4)
  1. VALTREX [Suspect]
     Dosage: 2000MG SINGLE DOSE
     Route: 048
     Dates: start: 20040729, end: 20040729
  2. CELEBREX [Concomitant]
     Indication: ARTHRITIS
     Dosage: 200MG TWICE PER DAY
     Dates: start: 20020807
  3. TENORMIN [Concomitant]
     Dosage: 50MG PER DAY
     Dates: start: 20020826
  4. NOVASEN [Concomitant]
     Indication: ANTICOAGULANT THERAPY
     Dosage: 325MG PER DAY
     Dates: start: 20030901

REACTIONS (5)
  - CHEST PAIN [None]
  - DIZZINESS [None]
  - FATIGUE [None]
  - HEART RATE INCREASED [None]
  - PALPITATIONS [None]
